FAERS Safety Report 8905863 (Version 1)
Quarter: 2012Q4

REPORT INFORMATION
  Report Type: Report from Study
  Country: MX (occurrence: MX)
  Receive Date: 20121109
  Receipt Date: 20121109
  Transmission Date: 20130627
  Serious: Yes (Death)
  Sender: FDA-Public Use
  Company Number: MX-GILEAD-2012-0064334

PATIENT
  Age: 9 Year
  Sex: Male

DRUGS (5)
  1. CIDOFOVIR [Suspect]
     Indication: RESPIRATORY PAPILLOMA
     Dosage: 3.5 mg, Once
     Route: 026
  2. CIDOFOVIR [Suspect]
     Dosage: 10 mg, Once
     Route: 026
  3. CIDOFOVIR [Suspect]
     Dosage: 50 mg, Once
     Route: 026
  4. CIDOFOVIR [Suspect]
     Dosage: 95 mg, Once
     Route: 026
  5. CIDOFOVIR [Suspect]
     Dosage: 60 mg, Once
     Route: 026

REACTIONS (1)
  - Drug ineffective for unapproved indication [Fatal]
